FAERS Safety Report 4491632-3 (Version None)
Quarter: 2004Q3

REPORT INFORMATION
  Report Type: 
  Country: None (occurrence: None)
  Receive Date: 20040921
  Receipt Date: 20040325
  Transmission Date: 20050211
  Serious: Yes (Hospitalization)
  Sender: FDA-Public Use
  Company Number: 163-20785-04030650

PATIENT
  Age: 47 Year
  Sex: Male
  Weight: 110 kg

DRUGS (7)
  1. THALOMID [Suspect]
     Indication: ANAPLASTIC ASTROCYTOMA
     Dosage: 100 MG, DAILY, ORAL
     Route: 048
     Dates: start: 20040319, end: 20040322
  2. CYCLOPHOSPHAMIDE [Suspect]
     Indication: ANAPLASTIC ASTROCYTOMA
     Dosage: 100 MG, DAILY, ORAL
     Route: 048
     Dates: start: 20040319, end: 20040322
  3. KEPPRA [Concomitant]
  4. AMARYL [Concomitant]
  5. AVANDIA [Concomitant]
  6. HUMULIN 70/30 [Concomitant]
  7. DECADRON [Concomitant]

REACTIONS (3)
  - DEEP VEIN THROMBOSIS [None]
  - PAIN IN EXTREMITY [None]
  - PULMONARY EMBOLISM [None]
